FAERS Safety Report 7853991-0 (Version None)
Quarter: 2011Q4

REPORT INFORMATION
  Report Type: 
  Country: None (occurrence: None)
  Receive Date: 20111026
  Receipt Date: 20111025
  Transmission Date: 20120403
  Serious: No
  Sender: FDA-Public Use
  Company Number: US-PFIZER INC-2011239290

PATIENT
  Sex: Female
  Weight: 79.365 kg

DRUGS (2)
  1. LIPITOR [Concomitant]
     Indication: BLOOD CHOLESTEROL INCREASED
     Dosage: 5 MG, DAILY
  2. ADVIL PM [Suspect]
     Indication: SLEEP DISORDER
     Dosage: 200 MG, DAILY
     Dates: start: 20111005, end: 20111006

REACTIONS (3)
  - HEART RATE INCREASED [None]
  - ENERGY INCREASED [None]
  - INSOMNIA [None]
